FAERS Safety Report 21250382 (Version 1)
Quarter: 2022Q3

REPORT INFORMATION
  Report Type: Spontaneous
  Country: CN (occurrence: None)
  Receive Date: 20220824
  Receipt Date: 20220824
  Transmission Date: 20221027
  Serious: Yes (Other)
  Sender: FDA-Public Use
  Company Number: CN-Eisai Medical Research-EC-2022-121781

PATIENT
  Age: 74 Year
  Sex: Male
  Weight: 65 kg

DRUGS (1)
  1. LENVIMA [Suspect]
     Active Substance: LENVATINIB
     Indication: Cholangiocarcinoma
     Route: 048
     Dates: start: 20220729, end: 20220816

REACTIONS (5)
  - Rectal tenesmus [Recovering/Resolving]
  - Listless [Recovering/Resolving]
  - Diarrhoea [Recovered/Resolved]
  - Asthenia [Recovering/Resolving]
  - Decreased appetite [Recovering/Resolving]

NARRATIVE: CASE EVENT DATE: 20220807
